FAERS Safety Report 6922767-0 (Version None)
Quarter: 2010Q3

REPORT INFORMATION
  Report Type: 
  Country: None (occurrence: None)
  Receive Date: 20100813
  Receipt Date: 20100811
  Transmission Date: 20110219
  Serious: Yes (Hospitalization)
  Sender: FDA-Public Use
  Company Number: IT-BRISTOL-MYERS SQUIBB COMPANY-15201957

PATIENT
  Age: 75 Year
  Sex: Female

DRUGS (8)
  1. KARVEZIDE TABS 150MG/12.5MG [Suspect]
     Indication: HYPERTENSION
     Dosage: 1 DF = KARVEZIDE TABLETS 150/12.5MG
     Route: 048
     Dates: start: 20050712, end: 20100712
  2. LASIX [Concomitant]
     Indication: HYPERTENSION
     Dosage: 1 DF = LASIX 25 MG TABS
  3. LANOXIN [Concomitant]
     Dosage: 1 DF = LANOXIN TABS 0.125MG
  4. LOPRESSOR [Concomitant]
     Route: 048
  5. TRAVATAN [Concomitant]
     Dosage: 1 DF = 40 MCG/ML COLLYRIUM
  6. SINTROM [Concomitant]
     Indication: ATRIAL FIBRILLATION
     Dosage: 1 MG TABS
  7. DELTACORTENE [Concomitant]
     Dosage: 5 MG TABS
     Route: 048
  8. CHLOROQUINE PHOSPHATE [Concomitant]
     Dosage: 1DF = 250MG TABS
     Route: 048

REACTIONS (4)
  - DISORIENTATION [None]
  - HYPONATRAEMIA [None]
  - NAUSEA [None]
  - VOMITING [None]
